FAERS Safety Report 10632236 (Version 1)
Quarter: 2014Q4

REPORT INFORMATION
  Report Type: Spontaneous
  Country: US (occurrence: US)
  Receive Date: 20141205
  Receipt Date: 20141205
  Transmission Date: 20150529
  Serious: No
  Sender: FDA-Public Use
  Company Number: US-BRISTOL-MYERS SQUIBB COMPANY-21604566

PATIENT
  Sex: Male

DRUGS (2)
  1. PROZAC [Suspect]
     Active Substance: FLUOXETINE HYDROCHLORIDE
  2. ABILIFY [Suspect]
     Active Substance: ARIPIPRAZOLE
     Route: 048

REACTIONS (7)
  - Diarrhoea [Unknown]
  - Dyspnoea [Recovering/Resolving]
  - Thirst [Unknown]
  - Visual acuity reduced [Unknown]
  - Abdominal pain upper [Unknown]
  - Back pain [Unknown]
  - Hearing impaired [Unknown]
